FAERS Safety Report 15573762 (Version 2)
Quarter: 2019Q1

REPORT INFORMATION
  Report Type: Report from Study
  Country: BR (occurrence: BR)
  Receive Date: 20181101
  Receipt Date: 20190110
  Transmission Date: 20190417
  Serious: Yes (Life-Threatening, Other)
  Sender: FDA-Public Use
  Company Number: BR-ROCHE-2179972

PATIENT
  Age: 52 Year
  Sex: Female
  Weight: 75 kg

DRUGS (3)
  1. XOLAIR [Suspect]
     Active Substance: OMALIZUMAB
     Route: 058
  2. XOLAIR [Suspect]
     Active Substance: OMALIZUMAB
     Indication: CHRONIC SPONTANEOUS URTICARIA
     Route: 058
     Dates: start: 20171215
  3. XOLAIR [Suspect]
     Active Substance: OMALIZUMAB
     Route: 058
     Dates: start: 20180110

REACTIONS (15)
  - Hallucination [Recovered/Resolved]
  - Erythema [Unknown]
  - Drug ineffective [Unknown]
  - Throat tightness [Unknown]
  - Skin burning sensation [Recovering/Resolving]
  - Weight decreased [Unknown]
  - Incorrect dose administered [Unknown]
  - Dyspnoea [Recovering/Resolving]
  - Haematoma [Unknown]
  - Somnolence [Recovering/Resolving]
  - Asphyxia [Recovering/Resolving]
  - Swelling [Unknown]
  - Urticaria [Recovering/Resolving]
  - Pruritus [Unknown]
  - Hypersensitivity [Not Recovered/Not Resolved]

NARRATIVE: CASE EVENT DATE: 201804
